FAERS Safety Report 9046558 (Version 1)
Quarter: 2013Q1

REPORT INFORMATION
  Report Type: Spontaneous
  Country: US (occurrence: None)
  Receive Date: 20130128
  Receipt Date: 20130128
  Transmission Date: 20140127
  Serious: Yes (Life-Threatening, Other)
  Sender: FDA-Public Use
  Company Number: None

PATIENT
  Age: 84 Year
  Sex: Female
  Weight: 86.18 kg

DRUGS (1)
  1. ZOLPIDEM [Suspect]
     Indication: SLEEP DISORDER THERAPY
     Dates: start: 20121112, end: 20130120

REACTIONS (5)
  - Somnambulism [None]
  - Multiple injuries [None]
  - Myalgia [None]
  - Contusion [None]
  - Laceration [None]
